FAERS Safety Report 25632255 (Version 1)
Quarter: 2025Q3

REPORT INFORMATION
  Report Type: Spontaneous
  Country: US (occurrence: US)
  Receive Date: 20250801
  Receipt Date: 20250801
  Transmission Date: 20251020
  Serious: Yes (Other)
  Sender: REGENERON
  Company Number: US-BAYER-2025A099038

PATIENT
  Age: 60 Year
  Sex: Female

DRUGS (1)
  1. EYLEA [Suspect]
     Active Substance: AFLIBERCEPT
     Indication: Diabetic retinal oedema
     Route: 031

REACTIONS (6)
  - Retinal haemorrhage [Recovered/Resolved]
  - Retinal oedema [Recovered/Resolved]
  - Macular hole [Recovered/Resolved]
  - Blindness [Recovered/Resolved]
  - Retinal tear [Recovered/Resolved]
  - Product administration error [Unknown]
